FAERS Safety Report 9394530 (Version 2)
Quarter: 2013Q3

REPORT INFORMATION
  Report Type: Report from Study
  Country: US (occurrence: US)
  Receive Date: 20130711
  Receipt Date: 20130827
  Transmission Date: 20140515
  Serious: Yes (Death)
  Sender: FDA-Public Use
  Company Number: PHEH2013US014610

PATIENT
  Age: 60 Year
  Sex: Male

DRUGS (1)
  1. TOBI [Suspect]
     Dosage: 300 UKN, BID

REACTIONS (1)
  - Death [Fatal]
